FAERS Safety Report 9079961 (Version 1)
Quarter: 2013Q1

REPORT INFORMATION
  Report Type: Spontaneous
  Country: GB (occurrence: GB)
  Receive Date: 20130130
  Receipt Date: 20130130
  Transmission Date: 20140127
  Serious: Yes (Other)
  Sender: FDA-Public Use
  Company Number: GB-ROXANE LABORATORIES, INC.-2013-RO-00146RO

PATIENT
  Age: 76 Year
  Sex: Male

DRUGS (3)
  1. LEVETIRACETAM [Suspect]
     Indication: CONVULSION
     Dosage: 1500 MG
  2. SODIUM VALPROATE [Suspect]
     Indication: CONVULSION
  3. CLOBAZAM [Suspect]
     Indication: CONVULSION

REACTIONS (3)
  - Circadian rhythm sleep disorder [Recovered/Resolved]
  - Agitation [Recovered/Resolved]
  - Hyponatraemia [Unknown]
